FAERS Safety Report 12704847 (Version 2)
Quarter: 2016Q3

REPORT INFORMATION
  Report Type: Spontaneous
  Country: JP (occurrence: JP)
  Receive Date: 20160831
  Receipt Date: 20160902
  Transmission Date: 20161109
  Serious: Yes (Other)
  Sender: FDA-Public Use
  Company Number: JP-EMD SERONO-8103668

PATIENT

DRUGS (7)
  1. HCG [Concomitant]
     Active Substance: GONADOTROPHIN, CHORIONIC
     Indication: INFERTILITY
     Route: 064
  2. CONJUGATED ESTROGENS [Concomitant]
     Active Substance: ESTROGENS, CONJUGATED
     Indication: INFERTILITY
     Dosage: 31DAYS
     Route: 064
  3. PROGESTERONE. [Concomitant]
     Active Substance: PROGESTERONE
     Route: 064
  4. GONAL-F [Suspect]
     Active Substance: FOLLITROPIN
     Indication: INFERTILITY
     Route: 064
  5. HMG                                /01277601/ [Concomitant]
     Indication: INFERTILITY
     Route: 064
  6. PROGESTERONE. [Concomitant]
     Active Substance: PROGESTERONE
     Indication: INFERTILITY
     Dosage: 31DAYS
     Route: 064
  7. CHLORMADINONE ACETATE [Concomitant]
     Active Substance: CHLORMADINONE ACETATE
     Indication: INFERTILITY
     Dosage: 31DAYS
     Route: 064

REACTIONS (1)
  - Foetal heart rate disorder [Unknown]
